FAERS Safety Report 8792919 (Version 2)
Quarter: 2012Q4

REPORT INFORMATION
  Report Type: 
  Country: US (occurrence: US)
  Receive Date: 20120918
  Receipt Date: 20121107
  Transmission Date: 20130627
  Serious: No
  Sender: FDA-Public Use
  Company Number: US-PFIZER INC-2012225797

PATIENT
  Age: 5 Year
  Sex: Female
  Weight: 8.39 kg

DRUGS (6)
  1. ZYVOX [Suspect]
     Indication: CELLULITIS
     Dosage: 180 mg, every 12 hours
     Dates: start: 20120831
  2. LANSOPRAZOLE [Concomitant]
     Indication: GASTROESOPHAGEAL REFLUX DISEASE
     Dosage: 15 mg, 2x/day
  3. GLYCOPYRROLATE [Concomitant]
     Indication: GASTROESOPHAGEAL REFLUX DISEASE
     Dosage: 0.6 mg, 3x/day
  4. IBUPROFEN [Concomitant]
     Indication: PAIN
     Dosage: 168 mg, every six hours as needed
  5. CLINDAMYCIN [Concomitant]
     Dosage: 75/5 12 ml TID
     Dates: end: 20120831
  6. ROBINUL [Concomitant]
     Dosage: daily

REACTIONS (4)
  - Alopecia [Unknown]
  - Blood albumin abnormal [Unknown]
  - Blood bilirubin abnormal [Unknown]
  - Alopecia [Unknown]
